FAERS Safety Report 24723851 (Version 8)
Quarter: 2025Q4

REPORT INFORMATION
  Report Type: Spontaneous
  Country: JP (occurrence: JP)
  Receive Date: 20241211
  Receipt Date: 20251126
  Transmission Date: 20260118
  Serious: Yes (Death, Hospitalization)
  Sender: SYMOGEN
  Company Number: JP-PARTNER THERAPEUTICS-2024PTX04087

PATIENT
  Age: 72 Year
  Sex: Male

DRUGS (3)
  1. SARGRAMOSTIM [Suspect]
     Active Substance: SARGRAMOSTIM
     Indication: Alveolar proteinosis
     Dosage: 125 ?G, IN 12 HOUR
     Dates: start: 20241025, end: 20241112
  2. SARGRAMOSTIM [Suspect]
     Active Substance: SARGRAMOSTIM
     Dosage: 125 ?G, IN 12 HOUR
     Dates: end: 20250203
  3. CLARITHROMYCIN [Concomitant]
     Active Substance: CLARITHROMYCIN
     Dosage: UNK
     Route: 048
     Dates: start: 20230615, end: 20231013

REACTIONS (7)
  - Enterocolitis [Fatal]
  - Altered state of consciousness [Fatal]
  - Pneumothorax [Recovered/Resolved]
  - Pneumomediastinum [Recovered/Resolved]
  - COVID-19 [Recovering/Resolving]
  - Pneumomediastinum [Recovered/Resolved]
  - Pneumothorax [Recovered/Resolved]

NARRATIVE: CASE EVENT DATE: 20241112
